FAERS Safety Report 5595289-X (Version None)
Quarter: 2008Q1

REPORT INFORMATION
  Report Type: 
  Country: None (occurrence: None)
  Receive Date: 20080117
  Receipt Date: 20080111
  Transmission Date: 20080703
  Serious: Yes (Hospitalization, Other)
  Sender: FDA-Public Use
  Company Number: US-MERCK-0709USA02432

PATIENT
  Age: 77 Year
  Sex: Female

DRUGS (1)
  1. FOSAMAX [Suspect]
     Indication: OSTEOPOROSIS
     Route: 048
     Dates: start: 20040917, end: 20060801

REACTIONS (10)
  - ACTINIC KERATOSIS [None]
  - ANXIETY [None]
  - APHTHOUS STOMATITIS [None]
  - BONE DISORDER [None]
  - BURSA DISORDER [None]
  - EYE DISORDER [None]
  - FEAR [None]
  - ORAL DISORDER [None]
  - OSTEONECROSIS [None]
  - TOOTH FRACTURE [None]
